FAERS Safety Report 8910374 (Version 1)
Quarter: 2012Q4

REPORT INFORMATION
  Report Type: Report from Study
  Country: JP (occurrence: JP)
  Receive Date: 20121114
  Receipt Date: 20121114
  Transmission Date: 20130627
  Serious: Yes (Other)
  Sender: FDA-Public Use
  Company Number: JP-VERTEX PHARMACEUTICAL INC.-AE-2012-011390

PATIENT
  Age: 62 Year
  Sex: Male

DRUGS (11)
  1. VX-950 (TELAPREVIR) [Suspect]
     Indication: CHRONIC HEPATITIS C
     Dosage: 2250 mg, qd
     Route: 048
     Dates: start: 20120124, end: 20120221
  2. VX-950 (TELAPREVIR) [Suspect]
     Dosage: 1500 mg, qd
     Route: 048
     Dates: start: 20120222, end: 20120418
  3. RIBAVIRIN [Suspect]
     Indication: CHRONIC HEPATITIS C
     Dosage: 800 mg, qd
     Route: 048
     Dates: start: 20120124, end: 20120208
  4. RIBAVIRIN [Suspect]
     Dosage: 600 mg, qd
     Route: 048
     Dates: start: 20120209
  5. PEGINTERFERON ALFA-2B [Suspect]
     Indication: CHRONIC HEPATITIS C
     Dosage: 1.35 ?g/kg, qw
     Route: 058
     Dates: start: 20120124, end: 20120201
  6. PEGINTERFERON ALFA-2B [Suspect]
     Dosage: 1.08 ?g/kg, qw
     Route: 058
     Dates: start: 20120222, end: 20120320
  7. PEGINTERFERON ALFA-2B [Suspect]
     Dosage: 1.35 ?g/kg, qw
     Route: 058
     Dates: start: 20120321
  8. BASEN OD [Concomitant]
     Dosage: 0.9 mg, qd
     Route: 048
  9. ADALAT L [Concomitant]
     Dosage: 20 mg, qd
     Route: 048
  10. OMEPRAL /00661201/ [Concomitant]
     Dosage: 10 mg, qd
     Route: 048
     Dates: start: 20120203, end: 20120530
  11. ZETIA [Concomitant]
     Dosage: 10 mg, qd
     Route: 048
     Dates: start: 20120404

REACTIONS (1)
  - Retinopathy [Recovered/Resolved]
